FAERS Safety Report 8664661 (Version 2)
Quarter: 2012Q4

REPORT INFORMATION
  Report Type: Report from Study
  Country: IL (occurrence: IL)
  Receive Date: 20120713
  Receipt Date: 20121218
  Transmission Date: 20130627
  Serious: Yes (Death)
  Sender: FDA-Public Use
  Company Number: IL-CELGENEUS-082-C5013-12070807

PATIENT
  Age: 75 Year
  Sex: Male

DRUGS (2)
  1. CC-5013 [Suspect]
     Indication: MANTLE CELL LYMPHOMA
     Route: 048
     Dates: start: 20110807, end: 20110827
  2. CC-5013 [Suspect]
     Route: 048
     Dates: start: 20111109, end: 20111129

REACTIONS (1)
  - Mantle cell lymphoma [Fatal]
